FAERS Safety Report 9633487 (Version 2)
Quarter: 2013Q4

REPORT INFORMATION
  Report Type: Spontaneous
  Country: US (occurrence: US)
  Receive Date: 20131021
  Receipt Date: 20131107
  Transmission Date: 20140711
  Serious: No
  Sender: FDA-Public Use
  Company Number: US-TEVA-439248USA

PATIENT
  Age: 25 Year
  Sex: Female
  Weight: 60.38 kg

DRUGS (2)
  1. PARAGARD 380A [Suspect]
     Indication: CONTRACEPTION
     Route: 015
     Dates: start: 20130813, end: 20131015
  2. THYROID [Concomitant]
     Indication: HYPOTHYROIDISM

REACTIONS (2)
  - Device expulsion [Recovered/Resolved]
  - Vulvovaginal pain [Recovered/Resolved]
